FAERS Safety Report 22339270 (Version 2)
Quarter: 2023Q4

REPORT INFORMATION
  Report Type: Spontaneous
  Country: FR (occurrence: FR)
  Receive Date: 20230518
  Receipt Date: 20231211
  Transmission Date: 20240110
  Serious: Yes (Other)
  Sender: FDA-Public Use
  Company Number: FR-PFIZER INC-PV202300083875

PATIENT
  Sex: Female

DRUGS (3)
  1. OXBRYTA [Suspect]
     Active Substance: VOXELOTOR
     Indication: Haemolytic anaemia
     Dosage: 1500 MG, DAILY
     Dates: start: 20221214
  2. HYDROXYUREA [Concomitant]
     Active Substance: HYDROXYUREA
     Indication: Haemolytic anaemia
  3. UREA [Concomitant]
     Active Substance: UREA
     Indication: Haemolytic anaemia

REACTIONS (9)
  - Haemoglobin abnormal [Not Recovered/Not Resolved]
  - Haematocrit abnormal [Not Recovered/Not Resolved]
  - Pain [Recovering/Resolving]
  - Reticulocyte count abnormal [Not Recovered/Not Resolved]
  - Blood bilirubin abnormal [Recovered/Resolved]
  - Blood lactate dehydrogenase abnormal [Not Recovered/Not Resolved]
  - Platelet count abnormal [Not Recovered/Not Resolved]
  - Fatigue [Recovering/Resolving]
  - Dyspnoea [Recovering/Resolving]

NARRATIVE: CASE EVENT DATE: 20230323
